FAERS Safety Report 10023482 (Version 3)
Quarter: 2014Q3

REPORT INFORMATION
  Report Type: Report from Study
  Country: DE (occurrence: DE)
  Receive Date: 20140320
  Receipt Date: 20140730
  Transmission Date: 20150326
  Serious: Yes (Hospitalization, Other)
  Sender: FDA-Public Use
  Company Number: DE-ROCHE-729094

PATIENT
  Age: 70 Year
  Sex: Male
  Weight: 74 kg

DRUGS (12)
  1. METOPROLOL SUCCINATE. [Concomitant]
     Active Substance: METOPROLOL SUCCINATE
  2. PREDNISOLONE. [Suspect]
     Active Substance: PREDNISOLONE
     Indication: RENAL TRANSPLANT
     Dosage: DATE OF LAST DOSE PRIOR TO SAE WOUND HEALING DISORDER: 06/SEP/2010 (20 MG)?MOST RECENT DOSE PRIOR TO
     Route: 048
     Dates: start: 20100815
  3. CEFUROXIME. [Concomitant]
     Active Substance: CEFUROXIME
     Route: 065
  4. MYCOPHENOLATE MOFETIL. [Suspect]
     Active Substance: MYCOPHENOLATE MOFETIL
     Dosage: MOST RECENT DOSE TO EVENT DISLOCATION AND IMPACTION OF DJ URETERAL STENT: 22/NOV/2010?LAST DOSE: 13/
     Route: 048
     Dates: start: 20101028, end: 20101214
  5. VALGANCICLOVIR [Concomitant]
     Active Substance: VALGANCICLOVIR
     Route: 065
  6. TACROLIMUS. [Suspect]
     Active Substance: TACROLIMUS
     Indication: RENAL TRANSPLANT
     Dosage: DATE OF LAST DOSE PRIOR TO SAE WOUND HEALING DISORDER: 06/SEP/2010 (6 MG)?MOST RECENT DOSE PRIOR TO
     Route: 048
     Dates: start: 20100815, end: 20110524
  7. BASILIXIMAB [Suspect]
     Active Substance: BASILIXIMAB
     Indication: RENAL TRANSPLANT
     Dosage: FREQUENCY: 1-0-0. DATE OF LAST DOSE PRIOR TO SAE: 19 AUG 2010.
     Route: 042
     Dates: start: 20100815
  8. ALLOPURINOL. [Concomitant]
     Active Substance: ALLOPURINOL
     Route: 065
  9. MYCOPHENOLATE MOFETIL. [Suspect]
     Active Substance: MYCOPHENOLATE MOFETIL
     Indication: RENAL TRANSPLANT
     Dosage: DATE OF LAST DOSE PRIOR TO SAE: 6/SEP/2010. (4 TABLETS)?LAST DOSE PRIOR TO SAE BK- VIRUS INFECTION
     Route: 048
     Dates: start: 20100815
  10. MYCOPHENOLATE MOFETIL. [Suspect]
     Active Substance: MYCOPHENOLATE MOFETIL
     Route: 048
     Dates: start: 20101015
  11. AMOXICILLIN. [Concomitant]
     Active Substance: AMOXICILLIN
     Dosage: 500/125
     Route: 065
     Dates: start: 20110117, end: 20110221
  12. PANTOPRAZOLE SODIUM [Concomitant]
     Active Substance: PANTOPRAZOLE SODIUM
     Route: 065

REACTIONS (12)
  - Urinary tract infection [Recovered/Resolved]
  - Device dislocation [Recovered/Resolved]
  - Pyrexia [Recovered/Resolved]
  - Urinary tract infection [Recovered/Resolved]
  - Transplant rejection [Recovered/Resolved]
  - Urethral stenosis [Recovered/Resolved]
  - Device occlusion [Recovered/Resolved]
  - Polyomavirus-associated nephropathy [Not Recovered/Not Resolved]
  - Postoperative wound infection [Recovered/Resolved]
  - Impaired healing [Recovered/Resolved]
  - BK virus infection [Recovered/Resolved]
  - Atrial fibrillation [Recovered/Resolved]

NARRATIVE: CASE EVENT DATE: 20100906
